FAERS Safety Report 16883667 (Version 2)
Quarter: 2019Q4

REPORT INFORMATION
  Report Type: Report from Study
  Country: NL (occurrence: NL)
  Receive Date: 20191004
  Receipt Date: 20191125
  Transmission Date: 20200122
  Serious: Yes (Hospitalization)
  Sender: FDA-Public Use
  Company Number: NL-EMD SERONO-9102960

PATIENT
  Age: 40 Year
  Sex: Female

DRUGS (2)
  1. VITAMIN D                          /00107901/ [Concomitant]
     Active Substance: ERGOCALCIFEROL
     Indication: PRODUCT USED FOR UNKNOWN INDICATION
     Dosage: DAILY
  2. REBIF [Suspect]
     Active Substance: INTERFERON BETA-1A
     Indication: RELAPSING-REMITTING MULTIPLE SCLEROSIS
     Route: 058

REACTIONS (5)
  - Neck pain [Recovering/Resolving]
  - Pain [Recovering/Resolving]
  - Influenza like illness [Not Recovered/Not Resolved]
  - Cholelithiasis [Recovering/Resolving]
  - Temperature intolerance [Unknown]

NARRATIVE: CASE EVENT DATE: 2019
